FAERS Safety Report 6432006-5 (Version None)
Quarter: 2009Q4

REPORT INFORMATION
  Report Type: 
  Country: None (occurrence: None)
  Receive Date: 20091109
  Receipt Date: 20091103
  Transmission Date: 20100525
  Serious: Yes (Other)
  Sender: FDA-Public Use
  Company Number: GB-JNJFOC-20091005814

PATIENT
  Age: 51 Year
  Sex: Female

DRUGS (2)
  1. TOPAMAX [Suspect]
     Dosage: 150MG AT AM AND 200G IN PM
     Route: 048
  2. TOPAMAX [Suspect]
     Indication: CONVULSION
     Route: 048

REACTIONS (3)
  - CONVULSION [None]
  - LOSS OF CONSCIOUSNESS [None]
  - TEARFULNESS [None]
